FAERS Safety Report 8962064 (Version 2)
Quarter: 2013Q1

REPORT INFORMATION
  Report Type: Spontaneous
  Country: US (occurrence: US)
  Receive Date: 20121212
  Receipt Date: 20130107
  Transmission Date: 20140127
  Serious: Yes (Other)
  Sender: FDA-Public Use
  Company Number: US-PFIZER INC-2012312723

PATIENT
  Age: 62 Year
  Sex: Male
  Weight: 104.31 kg

DRUGS (7)
  1. NEURONTIN [Suspect]
     Indication: FIBROMYALGIA
     Dosage: 100 MG, 3X/DAY
     Route: 048
     Dates: start: 200603
  2. NEURONTIN [Suspect]
     Indication: POST HERPETIC NEURALGIA
     Dosage: 300 MG, 3X/DAY
     Route: 048
  3. AMITRIPTYLINE [Concomitant]
     Dosage: UNK
  4. TRAZODONE [Concomitant]
     Dosage: UNK
  5. CELEXA [Concomitant]
     Dosage: UNK
  6. LISINOPRIL [Concomitant]
     Dosage: UNK
  7. CELEBREX [Concomitant]
     Dosage: UNK

REACTIONS (2)
  - Eye disorder [Unknown]
  - Drug ineffective [Unknown]
